FAERS Safety Report 8197907-9 (Version None)
Quarter: 2012Q1

REPORT INFORMATION
  Report Type: 
  Country: None (occurrence: None)
  Receive Date: 20120309
  Receipt Date: 20120305
  Transmission Date: 20120608
  Serious: Yes (Hospitalization)
  Sender: FDA-Public Use
  Company Number: US-BAYER-2012-022608

PATIENT
  Age: 23 Year
  Sex: Female
  Weight: 90 kg

DRUGS (10)
  1. YASMIN [Suspect]
     Dosage: UNK
     Dates: start: 20070614, end: 20080208
  2. TORADOL [Concomitant]
     Indication: FLANK PAIN
  3. CLOMIPHENE CITRATE [Concomitant]
     Dosage: 50 MG, UNK
     Dates: start: 20110207, end: 20110503
  4. ZYRTEC [Concomitant]
     Indication: MULTIPLE ALLERGIES
     Route: 048
  5. AUGMENTIN '125' [Concomitant]
     Route: 048
  6. ZOLOFT [Concomitant]
     Indication: DEPRESSION
     Route: 048
  7. NEXIUM [Concomitant]
     Indication: GASTROOESOPHAGEAL REFLUX DISEASE
     Route: 048
  8. HYDROCODONE BITARTRATE [Concomitant]
     Route: 048
  9. PHENERGAN [Concomitant]
     Route: 048
  10. KEFLEX [Concomitant]

REACTIONS (1)
  - THROMBOPHLEBITIS SUPERFICIAL [None]
